FAERS Safety Report 5999537-3 (Version None)
Quarter: 2008Q4

REPORT INFORMATION
  Report Type: 
  Country: None (occurrence: None)
  Receive Date: 20081211
  Receipt Date: 20081211
  Transmission Date: 20090506
  Serious: Yes (Life-Threatening, Hospitalization, Disabling)
  Sender: FDA-Public Use
  Company Number: None

PATIENT
  Sex: Female

DRUGS (3)
  1. DEPAKOTE [Suspect]
     Indication: BREAST DISORDER FEMALE
     Dosage: SOME FROM AGE 17 TO PRESENT AGE 65
  2. DEPAKOTE [Suspect]
     Indication: LYMPHOMA
     Dosage: SOME FROM AGE 17 TO PRESENT AGE 65
  3. RISPERIDONE [Suspect]

REACTIONS (4)
  - DIARRHOEA [None]
  - FEELING ABNORMAL [None]
  - MUSCLE SPASMS [None]
  - PAIN [None]
